FAERS Safety Report 8798469 (Version 1)
Quarter: 2012Q4

REPORT INFORMATION
  Report Type: 
  Country: US (occurrence: None)
  Receive Date: 20120917
  Receipt Date: 20120917
  Transmission Date: 20130627
  Serious: No
  Sender: FDA-Public Use
  Company Number: None

PATIENT
  Sex: Female
  Weight: 90.3 kg

DRUGS (6)
  1. PEG-L ASPARAGINASE [Suspect]
  2. CYCLOPHOSPHAMIDE [Suspect]
  3. CYTARABINE [Suspect]
  4. MERCAPTOPURINE [Suspect]
  5. METHOTREXATE [Suspect]
  6. DEXAMETHASONE [Concomitant]

REACTIONS (3)
  - Blood triglycerides increased [None]
  - Inflammation [None]
  - Neck pain [None]
